FAERS Safety Report 9626531 (Version 1)
Quarter: 2013Q4

REPORT INFORMATION
  Report Type: Spontaneous
  Country: US (occurrence: US)
  Receive Date: 20131016
  Receipt Date: 20131016
  Transmission Date: 20140711
  Serious: Yes (Hospitalization)
  Sender: FDA-Public Use
  Company Number: US-GILEAD-2013-0085515

PATIENT
  Sex: Male

DRUGS (4)
  1. LETAIRIS [Suspect]
     Indication: PRODUCT USED FOR UNKNOWN INDICATION
     Dosage: 5 MG, QD
     Dates: start: 20111229
  2. METOLAZONE [Suspect]
  3. ADCIRCA [Concomitant]
  4. FLOLAN [Concomitant]

REACTIONS (4)
  - Epistaxis [Unknown]
  - Dehydration [Unknown]
  - Sinusitis [Unknown]
  - Asthenia [Unknown]
